FAERS Safety Report 10796599 (Version 3)
Quarter: 2015Q2

REPORT INFORMATION
  Report Type: Report from Study
  Country: US (occurrence: US)
  Receive Date: 20150216
  Receipt Date: 20150408
  Transmission Date: 20150821
  Serious: Yes (Other)
  Sender: FDA-Public Use
  Company Number: US-BAYER-2015-013344

PATIENT
  Age: 80 Year
  Sex: Female

DRUGS (2)
  1. NEXAVAR [Suspect]
     Active Substance: SORAFENIB
     Indication: HEPATOCELLULAR CARCINOMA
     Dosage: 400 MG, BID
     Route: 048
     Dates: start: 20150312, end: 20150324
  2. NEXAVAR [Suspect]
     Active Substance: SORAFENIB
     Indication: THYROID CANCER
     Dosage: 400 MG, BID
     Route: 048
     Dates: start: 20150122, end: 20150302

REACTIONS (13)
  - Skin exfoliation [Not Recovered/Not Resolved]
  - Skin induration [None]
  - Erythema [None]
  - Drug ineffective [None]
  - Herpes zoster [None]
  - Rash [None]
  - Dry mouth [None]
  - Pain in extremity [None]
  - Alopecia [Not Recovered/Not Resolved]
  - Candida infection [Recovered/Resolved]
  - Blood pressure increased [None]
  - Dry skin [None]
  - Blood calcium decreased [None]

NARRATIVE: CASE EVENT DATE: 201501
